FAERS Safety Report 19829682 (Version 1)
Quarter: 2021Q3

REPORT INFORMATION
  Report Type: Spontaneous
  Country: FR (occurrence: FR)
  Receive Date: 20210915
  Receipt Date: 20210915
  Transmission Date: 20211014
  Serious: Yes (Other)
  Sender: FDA-Public Use
  Company Number: FR-PIRAMAL PHARMA LIMITED-2021-PEL-000172

PATIENT

DRUGS (17)
  1. DEXTROSE. [Concomitant]
     Active Substance: DEXTROSE
     Indication: LACTIC ACIDOSIS
  2. SODIUM CHLORIDE. [Concomitant]
     Active Substance: SODIUM CHLORIDE
     Indication: FLUID REPLACEMENT
     Dosage: 1000 MILLILITER
     Route: 065
  3. DEXTROSE. [Concomitant]
     Active Substance: DEXTROSE
     Indication: FLUID REPLACEMENT
  4. KETOPROFEN. [Concomitant]
     Active Substance: KETOPROFEN
     Indication: ANTIINFLAMMATORY THERAPY
     Dosage: UNK
     Route: 065
  5. PROPOFOL. [Suspect]
     Active Substance: PROPOFOL
     Indication: GENERAL ANAESTHESIA
     Dosage: 3 MILLIGRAM/KILOGRAM
     Route: 065
  6. ROCURONIUM [Suspect]
     Active Substance: ROCURONIUM BROMIDE
     Indication: MUSCLE RELAXANT THERAPY
  7. SEVOFLURANE. [Suspect]
     Active Substance: SEVOFLURANE
     Dosage: 2.5 PERCENT
     Route: 065
  8. SEVOFLURANE. [Suspect]
     Active Substance: SEVOFLURANE
     Indication: MAINTENANCE OF ANAESTHESIA
     Dosage: 1.5 PERCENT
     Route: 065
  9. SUFENTANIL [Suspect]
     Active Substance: SUFENTANIL
     Indication: INDUCTION OF ANAESTHESIA
     Dosage: 0.2 MICROGRAM/KILOGRAM
     Route: 065
  10. KETAMINE [Suspect]
     Active Substance: KETAMINE
     Indication: HYPERAESTHESIA
     Dosage: 0.2 MILLIGRAM/KILOGRAM
     Route: 065
  11. DEXTROSE. [Concomitant]
     Active Substance: DEXTROSE
     Indication: HYPOGLYCAEMIA
     Dosage: 10 PERCENT (500 ML)
     Route: 065
  12. MORPHINE [Concomitant]
     Active Substance: MORPHINE
     Indication: ANTIINFLAMMATORY THERAPY
     Dosage: UNK
     Route: 048
  13. ROCURONIUM [Suspect]
     Active Substance: ROCURONIUM BROMIDE
     Indication: ENDOTRACHEAL INTUBATION
     Dosage: 0.6 MILLIGRAM/KILOGRAM
     Route: 065
  14. PROPOFOL. [Suspect]
     Active Substance: PROPOFOL
     Dosage: 0.5 MILLIGRAM/KILOGRAM (2 BOLUS)
     Route: 041
  15. PARACETAMOL [Concomitant]
     Active Substance: ACETAMINOPHEN
     Indication: ANALGESIC THERAPY
     Dosage: UNK
     Route: 065
  16. NEFOPAM [Concomitant]
     Active Substance: NEFOPAM
     Indication: ANALGESIC THERAPY
     Dosage: UNK
     Route: 065
  17. DROPERIDOL. [Concomitant]
     Active Substance: DROPERIDOL
     Indication: PROPHYLAXIS OF NAUSEA AND VOMITING
     Dosage: 625 MICROGRAM
     Route: 065

REACTIONS (2)
  - Neuromuscular blockade [Recovered/Resolved]
  - Hyperlactacidaemia [Recovered/Resolved]
